FAERS Safety Report 18599817 (Version 1)
Quarter: 2020Q4

REPORT INFORMATION
  Report Type: Spontaneous
  Country: US (occurrence: US)
  Receive Date: 20201209
  Receipt Date: 20201209
  Transmission Date: 20210114
  Serious: Yes (Other)
  Sender: FDA-Public Use
  Company Number: None

PATIENT
  Age: 30 Year
  Sex: Male

DRUGS (4)
  1. THERA M [Concomitant]
  2. TRILEPTAL [Concomitant]
     Active Substance: OXCARBAZEPINE
  3. NICOTINE 21MG/24 PATCH [Concomitant]
  4. ZYPREXA [Suspect]
     Active Substance: OLANZAPINE
     Indication: PSYCHOTIC DISORDER
     Dosage: ?          OTHER FREQUENCY:HS;?
     Route: 048
     Dates: start: 20201120, end: 20201120

REACTIONS (2)
  - Tongue movement disturbance [None]
  - Dyskinesia [None]

NARRATIVE: CASE EVENT DATE: 20201120
